FAERS Safety Report 11543033 (Version 2)
Quarter: 2015Q3

REPORT INFORMATION
  Report Type: Report from Study
  Country: IT (occurrence: IT)
  Receive Date: 20150923
  Receipt Date: 20150929
  Transmission Date: 20151125
  Serious: Yes (Death)
  Sender: FDA-Public Use
  Company Number: PHHO2015IT014569

PATIENT
  Age: 78 Year
  Sex: Male

DRUGS (6)
  1. ALISKIREN [Suspect]
     Active Substance: ALISKIREN
     Indication: CARDIAC FAILURE CHRONIC
     Dosage: UNK
     Route: 048
     Dates: start: 20110115, end: 20110920
  2. ENALAPRIL [Suspect]
     Active Substance: ENALAPRIL
     Indication: CARDIAC FAILURE
     Dosage: UNK
     Route: 048
     Dates: start: 20110115, end: 20110920
  3. VALPROATE SODIUM W/VALPROIC ACID [Concomitant]
     Indication: PROPHYLAXIS
     Dosage: UNK
     Dates: start: 2010
  4. BISOPROLOLO [Concomitant]
     Active Substance: BISOPROLOL FUMARATE
     Indication: CARDIAC FAILURE CHRONIC
     Dosage: 1.25 MG, UNK
     Route: 048
     Dates: start: 2010
  5. ACETYLSALICYLIC ACID [Concomitant]
     Active Substance: ASPIRIN
     Indication: CARDIOVASCULAR EVENT PROPHYLAXIS
     Dosage: 100 MG, UNK
     Route: 048
     Dates: start: 2006
  6. LANSOPRAZOLE. [Concomitant]
     Active Substance: LANSOPRAZOLE
     Indication: PROPHYLAXIS AGAINST GASTROINTESTINAL ULCER
     Dosage: 15 MG, UNK
     Route: 048
     Dates: start: 2006

REACTIONS (1)
  - Death [Fatal]

NARRATIVE: CASE EVENT DATE: 20140820
